APPROVED DRUG PRODUCT: CHLORZOXAZONE
Active Ingredient: CHLORZOXAZONE
Strength: 750MG
Dosage Form/Route: TABLET;ORAL
Application: A212047 | Product #002 | TE Code: AB
Applicant: SOMERSET THERAPEUTICS LLC
Approved: Jan 27, 2023 | RLD: No | RS: No | Type: RX